FAERS Safety Report 4555820-X (Version None)
Quarter: 2005Q1

REPORT INFORMATION
  Report Type: 
  Country: None (occurrence: None)
  Receive Date: 20050118
  Receipt Date: 20040915
  Transmission Date: 20050727
  Serious: No
  Sender: FDA-Public Use
  Company Number: A03200403172

PATIENT
  Sex: Male

DRUGS (1)
  1. UROXATRAL [Suspect]
     Dosage: 10 MG QD - ORAL
     Route: 048
     Dates: start: 20040101, end: 20040910

REACTIONS (1)
  - MUSCLE SPASMS [None]
